FAERS Safety Report 7198885-1 (Version None)
Quarter: 2010Q4

REPORT INFORMATION
  Report Type: 
  Country: None (occurrence: None)
  Receive Date: 20101227
  Receipt Date: 20101213
  Transmission Date: 20110411
  Serious: Yes (Hospitalization, Disabling, Other)
  Sender: FDA-Public Use
  Company Number: DE-GENENTECH-308647

PATIENT
  Sex: Male
  Weight: 84 kg

DRUGS (7)
  1. MABTHERA [Suspect]
     Indication: B-CELL LYMPHOMA
     Dosage: 375 MG/M2, Q14D
     Route: 042
     Dates: start: 20090831, end: 20091201
  2. CYCLOPHOSPHAMIDE [Suspect]
     Indication: B-CELL LYMPHOMA
     Dosage: 750 MG/M2, Q14D
     Route: 042
     Dates: start: 20090901, end: 20091101
  3. ETOPOSIDE [Suspect]
     Indication: B-CELL LYMPHOMA
     Dosage: 100 MG/M2, UNK
     Route: 042
     Dates: start: 20090901, end: 20091101
  4. ADRIAMYCIN PFS [Suspect]
     Indication: B-CELL LYMPHOMA
     Dosage: 50 MG/M2, Q14D
     Route: 042
     Dates: start: 20090901, end: 20091101
  5. VINCRISTINE [Suspect]
     Indication: B-CELL LYMPHOMA
     Dosage: 2 MG, Q14D
     Route: 042
     Dates: start: 20090901, end: 20090901
  6. PREDNISOLONE [Suspect]
     Indication: B-CELL LYMPHOMA
     Dosage: 100 MG, UNK
     Route: 048
     Dates: start: 20090901, end: 20091101
  7. VINORELBINE [Suspect]
     Indication: B-CELL LYMPHOMA
     Dosage: 25 MG/M2, Q14D
     Route: 042
     Dates: start: 20090901, end: 20091101

REACTIONS (9)
  - ANAEMIA [None]
  - CHYLOTHORAX [None]
  - LEUKOPENIA [None]
  - PALMAR-PLANTAR ERYTHRODYSAESTHESIA SYNDROME [None]
  - POLYNEUROPATHY [None]
  - PROGRESSIVE MULTIFOCAL LEUKOENCEPHALOPATHY [None]
  - SECONDARY IMMUNODEFICIENCY [None]
  - T-CELL LYMPHOMA [None]
  - THROMBOCYTOPENIA [None]
